FAERS Safety Report 10795532 (Version 2)
Quarter: 2015Q1

REPORT INFORMATION
  Report Type: Spontaneous
  Country: US (occurrence: US)
  Receive Date: 20150215
  Receipt Date: 20150215
  Transmission Date: 20150721
  Serious: Yes (Other)
  Sender: FDA-Public Use
  Company Number: US-ACTAVIS-2015-02087

PATIENT
  Age: 69 Year
  Sex: Male

DRUGS (4)
  1. HYDROCHLOROTHIAZIDE. [Concomitant]
     Active Substance: HYDROCHLOROTHIAZIDE
     Indication: HYPERTENSION
     Dosage: UNK
  2. SILDENAFIL (WATSON LABORATORIES) [Suspect]
     Active Substance: SILDENAFIL
     Indication: PRIAPISM
     Dosage: UNK, DAILY
     Route: 048
  3. BICALUTAMIDE (ATLLC) [Suspect]
     Active Substance: BICALUTAMIDE
     Dosage: EVERY OTHER WEEK
     Route: 048
  4. BICALUTAMIDE (ATLLC) [Suspect]
     Active Substance: BICALUTAMIDE
     Indication: PRIAPISM
     Dosage: UNK, DAILY
     Route: 048

REACTIONS (5)
  - Erectile dysfunction [Unknown]
  - Testicular atrophy [Unknown]
  - Prostate cancer [Unknown]
  - Gynaecomastia [Unknown]
  - Libido decreased [Unknown]
